FAERS Safety Report 16927104 (Version 1)
Quarter: 2019Q4

REPORT INFORMATION
  Report Type: Spontaneous
  Country: CN (occurrence: CN)
  Receive Date: 20191016
  Receipt Date: 20191016
  Transmission Date: 20200122
  Serious: Yes (Other)
  Sender: FDA-Public Use
  Company Number: CN-PFIZER INC-2019422943

PATIENT
  Age: 52 Year
  Sex: Male

DRUGS (4)
  1. CHAMPIX [Suspect]
     Active Substance: VARENICLINE TARTRATE
     Dosage: 1 DF, 2XDAY (ONE IN THE MORNING AND ONE IN THE EVENING)
  2. CHAMPIX [Suspect]
     Active Substance: VARENICLINE TARTRATE
     Dosage: 1 DF, DAILY
  3. VALSARTAN. [Concomitant]
     Active Substance: VALSARTAN
     Indication: HYPERTENSION
     Dosage: 40 MG, DAILY
  4. CHAMPIX [Suspect]
     Active Substance: VARENICLINE TARTRATE
     Dosage: 1 DF, 2XDAY ONE TABLET IN MORNING AND ONE TABLET IN EVENING
     Dates: start: 201807

REACTIONS (13)
  - Speech disorder [Not Recovered/Not Resolved]
  - Communication disorder [Not Recovered/Not Resolved]
  - Lacrimation increased [Not Recovered/Not Resolved]
  - Vocal cord polyp [Not Recovered/Not Resolved]
  - Mental disorder [Unknown]
  - Disorientation [Not Recovered/Not Resolved]
  - Dysphonia [Not Recovered/Not Resolved]
  - Thinking abnormal [Not Recovered/Not Resolved]
  - Choking [Not Recovered/Not Resolved]
  - Muscle disorder [Unknown]
  - Photophobia [Not Recovered/Not Resolved]
  - Slow response to stimuli [Not Recovered/Not Resolved]
  - Eyelid ptosis [Not Recovered/Not Resolved]
